FAERS Safety Report 14285007 (Version 1)
Quarter: 2017Q4

REPORT INFORMATION
  Report Type: Spontaneous
  Country: US (occurrence: US)
  Receive Date: 20171214
  Receipt Date: 20171214
  Transmission Date: 20180321
  Serious: No
  Sender: FDA-Public Use
  Company Number: US-TEVA-381271USA

PATIENT
  Age: 32 Year
  Sex: Female
  Weight: 50.85 kg

DRUGS (3)
  1. REMERON [Concomitant]
     Active Substance: MIRTAZAPINE
     Indication: ANXIETY
  2. PARAGARD T 380A [Suspect]
     Active Substance: COPPER
     Indication: CONTRACEPTION
     Route: 015
     Dates: start: 20100318, end: 20100421
  3. LAMICTAL [Concomitant]
     Active Substance: LAMOTRIGINE
     Indication: BIPOLAR DISORDER

REACTIONS (3)
  - Alopecia [Not Recovered/Not Resolved]
  - Abdominal pain [Recovered/Resolved]
  - Burning sensation [Not Recovered/Not Resolved]

NARRATIVE: CASE EVENT DATE: 20100318
